FAERS Safety Report 5995466-X (Version None)
Quarter: 2008Q4

REPORT INFORMATION
  Report Type: 
  Country: None (occurrence: None)
  Receive Date: 20081212
  Receipt Date: 20081001
  Transmission Date: 20090506
  Serious: No
  Sender: FDA-Public Use
  Company Number: US-ABBOTT-08P-163-0479024-00

PATIENT
  Sex: Female

DRUGS (3)
  1. HUMIRA [Suspect]
     Indication: RHEUMATOID ARTHRITIS
     Route: 058
     Dates: start: 20050101, end: 20080701
  2. HUMIRA [Suspect]
     Route: 058
     Dates: start: 20080701
  3. PREDNISONE TAB [Concomitant]
     Indication: DRUG USE FOR UNKNOWN INDICATION

REACTIONS (8)
  - DIARRHOEA [None]
  - MUSCULOSKELETAL STIFFNESS [None]
  - PAIN [None]
  - PRURITUS [None]
  - PYREXIA [None]
  - RHEUMATOID ARTHRITIS [None]
  - URTICARIA [None]
  - VOMITING [None]
